FAERS Safety Report 5540657-5 (Version None)
Quarter: 2007Q4

REPORT INFORMATION
  Report Type: 
  Country: None (occurrence: None)
  Receive Date: 20071129
  Receipt Date: 20070911
  Transmission Date: 20080405
  Serious: Yes (Hospitalization)
  Sender: FDA-Public Use
  Company Number: US200709002162

PATIENT
  Age: 71 Year
  Sex: Female

DRUGS (4)
  1. ZYPREXA [Suspect]
     Indication: DEMENTIA
     Dosage: 15 MG, 2/D,
     Dates: start: 20070821, end: 20070822
  2. SINEMET [Concomitant]
  3. EFFEXOR [Concomitant]
  4. KLONOPIN [Concomitant]

REACTIONS (4)
  - ABASIA [None]
  - MUSCLE RIGIDITY [None]
  - OVERDOSE [None]
  - PARANOIA [None]
